FAERS Safety Report 9276695 (Version 1)
Quarter: 2013Q2

REPORT INFORMATION
  Report Type: Spontaneous
  Country: US (occurrence: None)
  Receive Date: 20130501
  Receipt Date: 20130501
  Transmission Date: 20140414
  Serious: Yes (Other)
  Sender: FDA-Public Use
  Company Number: SYM-2013-03220

PATIENT
  Age: 34 Year
  Sex: Female

DRUGS (14)
  1. WELLBUTRIN (BUPROPION HYDROCHLORIDE) (BUPROPION HYDROCHLORIDE) [Suspect]
     Indication: DEPRESSIVE SYMPTOM
     Route: 048
  2. EFFEXOR (VENLAFAXINE HYDROCHLORIDE) UNKNOWN [Suspect]
     Indication: DEPRESSIVE SYMPTOM
  3. LAMICTAL [Suspect]
     Indication: BIPOLAR II DISORDER
     Route: 048
     Dates: start: 2001
  4. LAMOTRIGINE (LAMOTRIGINE) (LAMOTRIGINE) [Suspect]
     Indication: BIPOLAR II DISORDER
     Route: 048
  5. MICROGESTIN [Suspect]
     Indication: CONTRACEPTION
  6. ZIPRASIDONE HCL [Suspect]
     Indication: PRODUCT USED FOR UNKNOWN INDICATION
  7. LEXAPRO [Suspect]
     Indication: DEPRESSIVE SYMPTOM
  8. CONTRACEPTIVES [Suspect]
     Indication: CONTRACEPTION
  9. ATORVASTATIN CALCIUM (ATORVASTATIN CALCIUM) (ATORVASTATIN CALCIUM) [Concomitant]
  10. OXCARBAZEPINE (OXCARBAZEPINE) (OXCARBAZEPINE) [Concomitant]
  11. NORTRIPTYLINE (NORTRIPTYLINE) (NORTRIPTYLINE) [Concomitant]
  12. FOLPLEX (HEPAGRISEVIT FORTE-N /01079901/) (PYRIDOXINE HYDROCHLORIDE, FOLIC ACID, CYANOCOBALAMIN) [Concomitant]
  13. PRENATAL VITAMINS (ASCORBIC ACID W/BIOTIN/MINERALS NOS/NICOTINIC) (ASCORBIC ACID, BIOTIN, TOCOPHEROL, NICOTINIC ACID, RETINOL, MINERALS NOS, VITAMIN B NOS, VITAMIN D NOS) [Concomitant]
  14. FISH OIL (FISH OIL) (FISH OIL) [Concomitant]

REACTIONS (16)
  - Impaired work ability [None]
  - Abortion spontaneous [None]
  - Maternal exposure during pregnancy [None]
  - Prescribed overdose [None]
  - Depression [None]
  - Hypersomnia [None]
  - Activities of daily living impaired [None]
  - Disturbance in attention [None]
  - Stress [None]
  - Drug level decreased [None]
  - Drug ineffective [None]
  - Pregnancy [None]
  - Pregnancy of unknown location [None]
  - Product substitution issue [None]
  - Drug interaction [None]
  - Mood altered [None]
